FAERS Safety Report 16168804 (Version 3)
Quarter: 2019Q2

REPORT INFORMATION
  Report Type: Spontaneous
  Country: CA (occurrence: CA)
  Receive Date: 20190408
  Receipt Date: 20190614
  Transmission Date: 20190711
  Serious: Yes (Other)
  Sender: FDA-Public Use
  Company Number: CA-ROCHE-2294692

PATIENT
  Age: 27 Year
  Sex: Female

DRUGS (34)
  1. XOLAIR [Suspect]
     Active Substance: OMALIZUMAB
     Route: 058
     Dates: start: 20170313
  2. XOLAIR [Suspect]
     Active Substance: OMALIZUMAB
     Route: 058
     Dates: start: 20180523
  3. BREO ELLIPTA [Concomitant]
     Active Substance: FLUTICASONE FUROATE\VILANTEROL TRIFENATATE
     Indication: PRODUCT USED FOR UNKNOWN INDICATION
     Route: 065
  4. REACTINE [CETIRIZINE HYDROCHLORIDE] [Concomitant]
     Active Substance: CETIRIZINE HYDROCHLORIDE
     Indication: PRODUCT USED FOR UNKNOWN INDICATION
     Route: 065
  5. XOLAIR [Suspect]
     Active Substance: OMALIZUMAB
     Route: 058
     Dates: start: 20160411
  6. XOLAIR [Suspect]
     Active Substance: OMALIZUMAB
     Route: 058
     Dates: start: 20180813
  7. XOLAIR [Suspect]
     Active Substance: OMALIZUMAB
     Route: 058
     Dates: start: 20140714
  8. XOLAIR [Suspect]
     Active Substance: OMALIZUMAB
     Route: 058
     Dates: start: 20161121
  9. XOLAIR [Suspect]
     Active Substance: OMALIZUMAB
     Route: 058
     Dates: start: 20171113
  10. XOLAIR [Suspect]
     Active Substance: OMALIZUMAB
     Route: 058
     Dates: start: 20160815
  11. XOLAIR [Suspect]
     Active Substance: OMALIZUMAB
     Route: 058
     Dates: start: 20181022
  12. SYMBICORT [Concomitant]
     Active Substance: BUDESONIDE\FORMOTEROL FUMARATE DIHYDRATE
     Dosage: 2 DF (PUFFS), BID
     Route: 065
  13. XOLAIR [Suspect]
     Active Substance: OMALIZUMAB
     Route: 058
     Dates: start: 20121231
  14. XOLAIR [Suspect]
     Active Substance: OMALIZUMAB
     Route: 058
     Dates: start: 20130527
  15. XOLAIR [Suspect]
     Active Substance: OMALIZUMAB
     Route: 058
     Dates: start: 20171127
  16. XOLAIR [Suspect]
     Active Substance: OMALIZUMAB
     Route: 058
     Dates: start: 20181119
  17. XOLAIR [Suspect]
     Active Substance: OMALIZUMAB
     Route: 058
     Dates: start: 201903
  18. XOLAIR [Suspect]
     Active Substance: OMALIZUMAB
     Indication: ASTHMA
     Route: 058
     Dates: start: 20120813
  19. XOLAIR [Suspect]
     Active Substance: OMALIZUMAB
     Route: 058
     Dates: start: 20131125
  20. XOLAIR [Suspect]
     Active Substance: OMALIZUMAB
     Route: 058
     Dates: start: 20150223
  21. XOLAIR [Suspect]
     Active Substance: OMALIZUMAB
     Route: 058
     Dates: start: 20160425
  22. XOLAIR [Suspect]
     Active Substance: OMALIZUMAB
     Route: 058
     Dates: start: 20190527
  23. SYMBICORT [Concomitant]
     Active Substance: BUDESONIDE\FORMOTEROL FUMARATE DIHYDRATE
     Indication: PRODUCT USED FOR UNKNOWN INDICATION
     Route: 065
  24. QVAR [Concomitant]
     Active Substance: BECLOMETHASONE DIPROPIONATE
     Indication: PRODUCT USED FOR UNKNOWN INDICATION
     Route: 065
  25. AVAMYS [Concomitant]
     Active Substance: FLUTICASONE FUROATE
     Indication: PRODUCT USED FOR UNKNOWN INDICATION
     Route: 065
  26. XOLAIR [Suspect]
     Active Substance: OMALIZUMAB
     Route: 058
     Dates: start: 20130325
  27. XOLAIR [Suspect]
     Active Substance: OMALIZUMAB
     Route: 058
     Dates: start: 20130916
  28. XOLAIR [Suspect]
     Active Substance: OMALIZUMAB
     Route: 058
     Dates: start: 20131209
  29. XOLAIR [Suspect]
     Active Substance: OMALIZUMAB
     Route: 058
     Dates: start: 20140106
  30. XOLAIR [Suspect]
     Active Substance: OMALIZUMAB
     Route: 058
     Dates: start: 20140505
  31. XOLAIR [Suspect]
     Active Substance: OMALIZUMAB
     Route: 058
     Dates: start: 20171228
  32. XOLAIR [Suspect]
     Active Substance: OMALIZUMAB
     Route: 058
     Dates: start: 20141215
  33. XOLAIR [Suspect]
     Active Substance: OMALIZUMAB
     Route: 058
     Dates: start: 20190311
  34. XOLAIR [Suspect]
     Active Substance: OMALIZUMAB
     Route: 058
     Dates: start: 20190325

REACTIONS (43)
  - Headache [Unknown]
  - Fatigue [Recovering/Resolving]
  - Chronic sinusitis [Recovering/Resolving]
  - Oropharyngeal pain [Recovering/Resolving]
  - Nasal discharge discolouration [Recovering/Resolving]
  - Dermatitis [Recovering/Resolving]
  - Pain in extremity [Not Recovered/Not Resolved]
  - Food allergy [Recovering/Resolving]
  - Productive cough [Unknown]
  - Seasonal allergy [Unknown]
  - Sinus pain [Unknown]
  - Dizziness [Recovering/Resolving]
  - Body temperature decreased [Unknown]
  - Pruritus [Unknown]
  - Neck pain [Unknown]
  - Insomnia [Unknown]
  - Injection site pruritus [Recovered/Resolved]
  - Weight decreased [Recovering/Resolving]
  - Dysphonia [Unknown]
  - Injection site hypersensitivity [Unknown]
  - Sinus congestion [Recovering/Resolving]
  - Arthralgia [Unknown]
  - Anxiety [Recovering/Resolving]
  - Cough [Recovering/Resolving]
  - Rash [Unknown]
  - Nasal congestion [Unknown]
  - Respiratory disorder [Recovering/Resolving]
  - Throat irritation [Unknown]
  - Hypersensitivity [Recovering/Resolving]
  - Influenza like illness [Unknown]
  - Heart rate increased [Unknown]
  - Injection site erythema [Recovered/Resolved]
  - Torticollis [Unknown]
  - Nasopharyngitis [Recovering/Resolving]
  - Nocturnal dyspnoea [Unknown]
  - Lip oedema [Unknown]
  - Back pain [Unknown]
  - Rhinorrhoea [Unknown]
  - Blood pressure increased [Not Recovered/Not Resolved]
  - Sputum discoloured [Recovered/Resolved]
  - Eczema [Unknown]
  - Sinusitis [Recovered/Resolved]
  - Bronchial hyperreactivity [Unknown]

NARRATIVE: CASE EVENT DATE: 201210
